FAERS Safety Report 7073766-2 (Version None)
Quarter: 2010Q4

REPORT INFORMATION
  Report Type: 
  Country: None (occurrence: None)
  Receive Date: 20101029
  Receipt Date: 20100812
  Transmission Date: 20110411
  Serious: No
  Sender: FDA-Public Use
  Company Number: A0875560A

PATIENT
  Age: 78 Year
  Sex: Male

DRUGS (4)
  1. ADVAIR DISKUS 100/50 [Suspect]
     Indication: ASTHMA
     Dosage: 1PUFF TWICE PER DAY
     Route: 055
     Dates: start: 20100501
  2. IRBESARTAN [Concomitant]
  3. METOPROLOL [Concomitant]
  4. AMLODIPINE [Concomitant]

REACTIONS (2)
  - ARTHRALGIA [None]
  - BACK PAIN [None]
